FAERS Safety Report 9515165 (Version 2)
Quarter: 2014Q1

REPORT INFORMATION
  Report Type: Spontaneous
  Country: US (occurrence: None)
  Receive Date: 20130305
  Receipt Date: 20140306
  Transmission Date: 20141002
  Serious: Yes (Hospitalization)
  Sender: FDA-Public Use
  Company Number: 163-21880-12122840

PATIENT
  Age: 58 Year
  Sex: Female
  Weight: 51.4 kg

DRUGS (13)
  1. REVLIMID [Suspect]
     Indication: PLASMA CELL MYELOMA
     Dosage: 25 MG, 1 IN 1 D, PO
     Route: 048
     Dates: start: 20110912
  2. VELCADE (BORTEZOMIB) [Concomitant]
  3. DEXAMETHASONE [Concomitant]
  4. PAMIDRONATE (PAMIDRONATE DISODIUM) [Concomitant]
  5. VALIUM (DIAZEPAM) [Concomitant]
  6. FENTANYL [Concomitant]
  7. LIDOCAINE [Concomitant]
  8. OXYCODONE [Concomitant]
  9. OXYCODONE [Concomitant]
  10. POTASSIUM [Concomitant]
  11. PHENERGAN (PROMETHAZINE) [Concomitant]
  12. FLUID (BARIUM SULFATE) [Concomitant]
  13. METHADONE [Concomitant]

REACTIONS (1)
  - Pneumonia [None]
